FAERS Safety Report 21768917 (Version 3)
Quarter: 2023Q1

REPORT INFORMATION
  Report Type: Spontaneous
  Country: US (occurrence: US)
  Receive Date: 20221222
  Receipt Date: 20230128
  Transmission Date: 20230417
  Serious: No
  Sender: FDA-Public Use
  Company Number: US-BoehringerIngelheim-2022-BI-209433

PATIENT
  Age: 71 Year
  Sex: Male

DRUGS (1)
  1. COMBIVENT RESPIMAT [Suspect]
     Active Substance: ALBUTEROL SULFATE\IPRATROPIUM BROMIDE
     Indication: Chronic obstructive pulmonary disease
     Dosage: 1 PUFF?20MCG/100M?CG 120ACT

REACTIONS (2)
  - Dyspnoea [Recovered/Resolved]
  - Product delivery mechanism issue [Unknown]

NARRATIVE: CASE EVENT DATE: 20221201
